FAERS Safety Report 11348451 (Version 1)
Quarter: 2015Q3

REPORT INFORMATION
  Report Type: Spontaneous
  Country: FR (occurrence: FR)
  Receive Date: 20150806
  Receipt Date: 20150806
  Transmission Date: 20151125
  Serious: Yes (Hospitalization)
  Sender: FDA-Public Use
  Company Number: FR-GE HEALTHCARE MEDICAL DIAGNOSTICS-VISP-PR-1507S-0301

PATIENT
  Age: 81 Year
  Sex: Male

DRUGS (15)
  1. RESIKALI [Concomitant]
  2. ALPRAZOLAM. [Concomitant]
     Active Substance: ALPRAZOLAM
  3. INEXIUM [Concomitant]
     Active Substance: ESOMEPRAZOLE
  4. PARACETAMOL [Concomitant]
     Active Substance: ACETAMINOPHEN
  5. BISOPROLOL [Concomitant]
     Active Substance: BISOPROLOL
  6. BICARBONATE SODIUM [Concomitant]
  7. VISIPAQUE [Suspect]
     Active Substance: IODIXANOL
     Indication: PRODUCT USED FOR UNKNOWN INDICATION
     Route: 042
     Dates: start: 20150622, end: 20150622
  8. AMLOR [Concomitant]
     Active Substance: AMLODIPINE BESYLATE
  9. VISIPAQUE [Suspect]
     Active Substance: IODIXANOL
     Indication: DIAGNOSTIC PROCEDURE
  10. AMIKACINE [Suspect]
     Active Substance: AMIKACIN
     Indication: LUNG DISORDER
     Route: 042
     Dates: start: 20150623, end: 20150623
  11. CLOPIDOGREL [Concomitant]
     Active Substance: CLOPIDOGREL BISULFATE
  12. COLCHIMAX [Concomitant]
     Active Substance: COLCHICINE\DICYCLOMINE HYDROCHLORIDE
  13. MIANSERINE [Concomitant]
     Active Substance: MIANSERIN HYDROCHLORIDE
  14. CALCIUM [Concomitant]
     Active Substance: CALCIUM
  15. ROCEPHINE [Suspect]
     Active Substance: CEFTRIAXONE SODIUM
     Indication: LUNG DISORDER
     Route: 042
     Dates: start: 20150623, end: 20150623

REACTIONS (1)
  - Toxic skin eruption [Recovered/Resolved]

NARRATIVE: CASE EVENT DATE: 20150623
